FAERS Safety Report 8395215-4 (Version None)
Quarter: 2012Q2

REPORT INFORMATION
  Report Type: 
  Country: None (occurrence: None)
  Receive Date: 20120530
  Receipt Date: 20120511
  Transmission Date: 20120825
  Serious: Yes (Other)
  Sender: FDA-Public Use
  Company Number: US-SHIRE-ALL1-2012-02664

PATIENT
  Sex: Female
  Weight: 52.154 kg

DRUGS (2)
  1. VYVANSE [Suspect]
     Indication: ATTENTION DEFICIT/HYPERACTIVITY DISORDER
     Dosage: 40 MG, 1X/DAY:QD
     Route: 048
     Dates: start: 20111001
  2. WELLBUTRIN [Suspect]
     Indication: DEPRESSION
     Dosage: UNK UNK, 1X/DAY:QD
     Route: 048
     Dates: start: 20120101, end: 20120101

REACTIONS (6)
  - DEPRESSION [None]
  - ANGER [None]
  - POST-TRAUMATIC STRESS DISORDER [None]
  - DRUG INTERACTION [None]
  - SOCIAL PROBLEM [None]
  - HOSTILITY [None]
